FAERS Safety Report 8114297 (Version 2)
Quarter: 2012Q4

REPORT INFORMATION
  Report Type: 
  Country: KR (occurrence: KR)
  Receive Date: 20110831
  Receipt Date: 20120905
  Transmission Date: 20130627
  Serious: Yes (Death, Other)
  Sender: FDA-Public Use
  Company Number: KR-RANBAXY-2011RR-47056

PATIENT
  Age: 55 Year
  Sex: Male

DRUGS (3)
  1. ACICLOVIR [Suspect]
     Indication: KERATITIS HERPETIC
     Dosage: 400 mg, bid
     Route: 048
  2. MYCOPHENOLATE MOFETIL [Suspect]
     Indication: KERATITIS HERPETIC
     Dosage: 1000 mg, bid
     Route: 065
  3. CYCLOSPORINE [Concomitant]
     Indication: KERATITIS HERPETIC
     Dosage: 100 mg, bid
     Route: 048

REACTIONS (2)
  - Grand mal convulsion [Recovered/Resolved]
  - Drug interaction [Recovered/Resolved]
